FAERS Safety Report 4499033-9 (Version None)
Quarter: 2004Q4

REPORT INFORMATION
  Report Type: 
  Country: None (occurrence: None)
  Receive Date: 20040927
  Receipt Date: 20040601
  Transmission Date: 20050328
  Serious: No
  Sender: FDA-Public Use
  Company Number: USA040668944

PATIENT
  Age: 8 Year
  Sex: Male
  Weight: 30 kg

DRUGS (1)
  1. STRATTERA [Suspect]
     Indication: ATTENTION DEFICIT/HYPERACTIVITY DISORDER
     Dosage: 40 MG DAY
     Dates: start: 20030801, end: 20040401

REACTIONS (4)
  - ABNORMAL BEHAVIOUR [None]
  - AGGRESSION [None]
  - DRUG INEFFECTIVE [None]
  - GROWTH RETARDATION [None]
